FAERS Safety Report 9344054 (Version 2)
Quarter: 2013Q3

REPORT INFORMATION
  Report Type: Spontaneous
  Country: FR (occurrence: FR)
  Receive Date: 20130612
  Receipt Date: 20130912
  Transmission Date: 20140515
  Serious: Yes (Hospitalization)
  Sender: FDA-Public Use
  Company Number: FR-BRISTOL-MYERS SQUIBB COMPANY-18982165

PATIENT
  Age: 26 Year
  Sex: Female

DRUGS (3)
  1. REYATAZ CAPS [Suspect]
     Indication: HIV INFECTION
     Route: 048
     Dates: start: 20111025, end: 20130404
  2. NORVIR [Suspect]
     Indication: HIV INFECTION
     Route: 048
     Dates: start: 20111025, end: 20130404
  3. TRUVADA [Concomitant]
     Dosage: 1 DF=TRUVADA 200MG/245 MG TABLET
     Route: 048
     Dates: start: 20111025

REACTIONS (4)
  - Cholestasis of pregnancy [Recovering/Resolving]
  - Pruritus generalised [Recovering/Resolving]
  - Asthenia [Recovering/Resolving]
  - Twin pregnancy [Unknown]
